FAERS Safety Report 6416546-0 (Version None)
Quarter: 2009Q4

REPORT INFORMATION
  Report Type: 
  Country: None (occurrence: None)
  Receive Date: 20091027
  Receipt Date: 20091015
  Transmission Date: 20100525
  Serious: Yes (Other)
  Sender: FDA-Public Use
  Company Number: PHHY2009MX44694

PATIENT
  Age: 90 Year
  Sex: Female

DRUGS (3)
  1. EXELON [Suspect]
     Indication: DEMENTIA ALZHEIMER'S TYPE
     Dosage: 5 CM2, ONE PATCH/DAY
     Route: 062
     Dates: end: 20091008
  2. EXELON [Suspect]
     Dosage: 10 CM2, ONE PATCH/DAY
     Route: 062
     Dates: start: 20091008
  3. LEVETIRACETAM [Concomitant]
     Dosage: 500 MG/DAY
     Route: 048
     Dates: start: 20091008

REACTIONS (4)
  - COMPLEX PARTIAL SEIZURES [None]
  - CONFUSIONAL STATE [None]
  - MEMORY IMPAIRMENT [None]
  - PARANOIA [None]
